FAERS Safety Report 6837639-X (Version None)
Quarter: 2010Q3

REPORT INFORMATION
  Report Type: 
  Country: None (occurrence: None)
  Receive Date: 20100713
  Receipt Date: 20070517
  Transmission Date: 20110219
  Serious: No
  Sender: FDA-Public Use
  Company Number: US-PFIZER INC-2007040515

PATIENT
  Sex: Female
  Weight: 65.454 kg

DRUGS (9)
  1. CHANTIX [Suspect]
     Indication: SMOKING CESSATION THERAPY
     Route: 048
     Dates: start: 20070510
  2. DOXYCYCLINE [Suspect]
     Indication: SINUSITIS
     Route: 048
     Dates: start: 20070101, end: 20070501
  3. ALL OTHER THERAPEUTIC PRODUCTS [Suspect]
     Indication: SINUSITIS
     Route: 048
     Dates: start: 20070101, end: 20070501
  4. SYNTHROID [Concomitant]
     Route: 048
  5. HYDROXYCHLOROQUINE [Concomitant]
     Route: 048
  6. EFFEXOR [Concomitant]
     Route: 048
  7. CELEBREX [Concomitant]
     Route: 048
  8. LIPITOR [Concomitant]
     Route: 048
  9. RANITIDINE [Concomitant]
     Indication: GASTROOESOPHAGEAL REFLUX DISEASE
     Route: 048

REACTIONS (1)
  - GASTROOESOPHAGEAL REFLUX DISEASE [None]
